FAERS Safety Report 7552954-2 (Version None)
Quarter: 2011Q2

REPORT INFORMATION
  Report Type: 
  Country: None (occurrence: None)
  Receive Date: 20110616
  Receipt Date: 20101210
  Transmission Date: 20111010
  Serious: No
  Sender: FDA-Public Use
  Company Number: US-ASTRAZENECA-2009SE32862

PATIENT
  Age: 56 Year
  Sex: Female

DRUGS (7)
  1. ZOCOR [Concomitant]
  2. FASLODEX [Suspect]
     Indication: BREAST CANCER
     Route: 030
  3. ZOMETTA [Concomitant]
  4. LISINOPRIL [Concomitant]
  5. ASPIRIN [Concomitant]
  6. GLYPESIDE [Concomitant]
  7. LORTAB [Concomitant]

REACTIONS (2)
  - OBESITY [None]
  - INCORRECT ROUTE OF DRUG ADMINISTRATION [None]
